FAERS Safety Report 22215978 (Version 1)
Quarter: 2023Q2

REPORT INFORMATION
  Report Type: Spontaneous
  Country: US (occurrence: US)
  Receive Date: 20230417
  Receipt Date: 20230417
  Transmission Date: 20230722
  Serious: Yes (Other)
  Sender: FDA-Public Use
  Company Number: None

PATIENT
  Age: 67 Year
  Sex: Female

DRUGS (10)
  1. LEVETIRACETAM [Suspect]
     Active Substance: LEVETIRACETAM
     Indication: Product used for unknown indication
  2. FENTANYL [Concomitant]
     Active Substance: FENTANYL
     Indication: Seizure prophylaxis
  3. FENTANYL [Concomitant]
     Active Substance: FENTANYL
  4. FENTANYL [Concomitant]
     Active Substance: FENTANYL
     Indication: Product used for unknown indication
  5. LIDOCAINE [Concomitant]
     Active Substance: LIDOCAINE
     Indication: Seizure prophylaxis
  6. LIDOCAINE [Concomitant]
     Active Substance: LIDOCAINE
     Indication: Product used for unknown indication
  7. PROPOFOL [Concomitant]
     Active Substance: PROPOFOL
     Indication: Seizure prophylaxis
  8. PROPOFOL [Concomitant]
     Active Substance: PROPOFOL
     Indication: Product used for unknown indication
  9. ROCURONIUM [Concomitant]
     Active Substance: ROCURONIUM BROMIDE
     Indication: Seizure prophylaxis
  10. ROCURONIUM [Concomitant]
     Active Substance: ROCURONIUM BROMIDE
     Indication: Product used for unknown indication

REACTIONS (4)
  - Kounis syndrome [Unknown]
  - Hypotension [Unknown]
  - Stress cardiomyopathy [Unknown]
  - Acute coronary syndrome [Unknown]
